FAERS Safety Report 24163686 (Version 1)
Quarter: 2024Q3

REPORT INFORMATION
  Report Type: Spontaneous
  Country: US (occurrence: US)
  Receive Date: 20240801
  Receipt Date: 20240801
  Transmission Date: 20241017
  Serious: No
  Sender: PFIZER
  Company Number: US-PFIZER INC-PV202400100202

PATIENT
  Age: 78 Year
  Sex: Female

DRUGS (9)
  1. FLAGYL [Suspect]
     Active Substance: METRONIDAZOLE\METRONIDAZOLE HYDROCHLORIDE
     Dosage: UNK
  2. ASCORBIC ACID [Concomitant]
     Active Substance: ASCORBIC ACID
  3. CHOLECALCIFEROL [Concomitant]
     Active Substance: CHOLECALCIFEROL
  4. CYCLOSPORINE [Concomitant]
     Active Substance: CYCLOSPORINE
  5. METOPROLOL SUCCINATE [Concomitant]
     Active Substance: METOPROLOL SUCCINATE
  6. POLYETHYLENE GLYCOL 3350 [Concomitant]
     Active Substance: POLYETHYLENE GLYCOL 3350
  7. PREDNISOLONE [Concomitant]
     Active Substance: PREDNISOLONE
  8. SIMVASTATIN [Concomitant]
     Active Substance: SIMVASTATIN
  9. VALACYCLOVIR HYDROCHLORIDE [Concomitant]
     Active Substance: VALACYCLOVIR HYDROCHLORIDE

REACTIONS (1)
  - Dizziness [Unknown]
